FAERS Safety Report 6887288-2 (Version None)
Quarter: 2010Q3

REPORT INFORMATION
  Report Type: 
  Country: None (occurrence: None)
  Receive Date: 20100730
  Receipt Date: 20100215
  Transmission Date: 20110219
  Serious: Yes (Hospitalization)
  Sender: FDA-Public Use
  Company Number: A0736265A

PATIENT
  Age: 69 Year
  Sex: Female
  Weight: 73.6 kg

DRUGS (5)
  1. IMITREX [Suspect]
     Indication: MIGRAINE
     Dosage: 50MG AS REQUIRED
     Route: 048
     Dates: start: 20040101
  2. DEPAKOTE [Concomitant]
     Indication: MIGRAINE
     Dosage: 500MGD PER DAY
     Route: 048
     Dates: start: 20010101
  3. LOVASTATIN [Concomitant]
     Dosage: 20MG PER DAY
     Route: 048
     Dates: start: 20090201, end: 20090301
  4. PAXIL [Concomitant]
     Indication: DEPRESSION
     Dosage: 20MG PER DAY
     Route: 048
     Dates: start: 20010101
  5. PREDNISONE [Concomitant]
     Indication: MIGRAINE
     Dosage: 10MGD PER DAY
     Route: 048

REACTIONS (5)
  - CONDITION AGGRAVATED [None]
  - DRUG INEFFECTIVE [None]
  - HEADACHE [None]
  - MIGRAINE [None]
  - WRONG TECHNIQUE IN DRUG USAGE PROCESS [None]
